FAERS Safety Report 9106147 (Version 1)
Quarter: 2013Q1

REPORT INFORMATION
  Report Type: Spontaneous
  Country: HK (occurrence: HK)
  Receive Date: 20130221
  Receipt Date: 20130221
  Transmission Date: 20140127
  Serious: Yes (Death, Other)
  Sender: FDA-Public Use
  Company Number: PHHY2013HK016716

PATIENT
  Age: 49 Year
  Sex: Female

DRUGS (3)
  1. CICLOSPORIN [Suspect]
     Indication: LIVER TRANSPLANT
  2. PREDNISOLONE [Suspect]
     Indication: LIVER TRANSPLANT
  3. TACROLIMUS [Suspect]

REACTIONS (8)
  - Death [Fatal]
  - Post transplant lymphoproliferative disorder [Unknown]
  - Epstein-Barr virus infection [Unknown]
  - Muscular weakness [Unknown]
  - Liver transplant rejection [Unknown]
  - Splenomegaly [Unknown]
  - Dyspnoea [Unknown]
  - Abasia [Unknown]
